FAERS Safety Report 13277055 (Version 5)
Quarter: 2017Q2

REPORT INFORMATION
  Report Type: Spontaneous
  Country: DE (occurrence: DE)
  Receive Date: 20170228
  Receipt Date: 20170613
  Transmission Date: 20170830
  Serious: Yes (Life-Threatening, Hospitalization, Disabling, Other)
  Sender: FDA-Public Use
  Company Number: DE-BRISTOL-MYERS SQUIBB COMPANY-BMS-2017-014804

PATIENT
  Age: 79 Year
  Sex: Female

DRUGS (4)
  1. ATORVASTATIN [Suspect]
     Active Substance: ATORVASTATIN
     Indication: CEREBROVASCULAR ACCIDENT
     Dosage: 20 MG, QD
     Route: 048
  2. CLOPIDOGREL [Concomitant]
     Active Substance: CLOPIDOGREL BISULFATE
     Indication: CEREBROVASCULAR ACCIDENT
     Dosage: 1 DF, QD
     Route: 065
  3. LITALIR [Suspect]
     Active Substance: HYDROXYUREA
     Indication: POLYCYTHAEMIA
     Dosage: 500 MG, QD
     Route: 048
     Dates: start: 201409, end: 201609
  4. HYDROXYCARBAMID [Suspect]
     Active Substance: HYDROXYUREA
     Indication: PRODUCT USED FOR UNKNOWN INDICATION
     Dosage: UNK
     Route: 065
     Dates: start: 20140902

REACTIONS (35)
  - Dehydration [Unknown]
  - Oesophageal varices haemorrhage [Unknown]
  - General physical health deterioration [Unknown]
  - Gastritis [Unknown]
  - Infection prophylaxis [Unknown]
  - Hypertension [Unknown]
  - Portal shunt procedure [Unknown]
  - Portal hypertensive gastropathy [Unknown]
  - Erosive duodenitis [Unknown]
  - Rosacea [Unknown]
  - Actinic keratosis [Unknown]
  - Upper gastrointestinal haemorrhage [Unknown]
  - Cough [Recovering/Resolving]
  - Pleural effusion [Unknown]
  - Cryotherapy [Unknown]
  - Rash [Unknown]
  - Infection [Unknown]
  - Fatigue [Unknown]
  - Splenomegaly [Unknown]
  - Oesophageal motility disorder [Unknown]
  - Erythema [Unknown]
  - Decreased appetite [Unknown]
  - Weight decreased [Unknown]
  - Cerebral infarction [Unknown]
  - Transient ischaemic attack [Unknown]
  - Portal vein thrombosis [Unknown]
  - Haemoglobin decreased [Unknown]
  - Ascites [Unknown]
  - Varices oesophageal [Unknown]
  - Polypectomy [Unknown]
  - Hiatus hernia [Unknown]
  - Hepatic cirrhosis [Not Recovered/Not Resolved]
  - Hepatic encephalopathy [Unknown]
  - Skin papilloma [Unknown]
  - Oedema peripheral [Unknown]

NARRATIVE: CASE EVENT DATE: 201609
